FAERS Safety Report 9737171 (Version 2)
Quarter: 2013Q4

REPORT INFORMATION
  Report Type: Spontaneous
  Country: JP (occurrence: JP)
  Receive Date: 20131206
  Receipt Date: 20131206
  Transmission Date: 20140711
  Serious: Yes (Death, Other)
  Sender: FDA-Public Use
  Company Number: JP-ROCHE-1285132

PATIENT
  Age: 78 Year
  Sex: Female
  Weight: 48 kg

DRUGS (14)
  1. AVASTIN [Suspect]
     Indication: LUNG ADENOCARCINOMA METASTATIC
     Route: 041
     Dates: start: 20120822, end: 20130725
  2. ALIMTA [Suspect]
     Indication: LUNG ADENOCARCINOMA METASTATIC
     Route: 041
     Dates: start: 20120822, end: 20121115
  3. ALIMTA [Suspect]
     Indication: LUNG ADENOCARCINOMA METASTATIC
     Route: 041
     Dates: start: 20121213, end: 20130725
  4. CARBOPLATIN [Concomitant]
     Indication: LUNG ADENOCARCINOMA METASTATIC
     Route: 041
     Dates: start: 20120822, end: 20121115
  5. DECADRON [Concomitant]
     Indication: PROPHYLAXIS
     Route: 048
     Dates: start: 20120823, end: 20130728
  6. METHYCOBAL [Concomitant]
     Indication: PROPHYLAXIS
     Route: 030
     Dates: start: 20120809, end: 20130725
  7. PANVITAN [Concomitant]
     Indication: PROPHYLAXIS
     Route: 048
     Dates: start: 20120809, end: 20130802
  8. CODEINE PHOSPHATE [Concomitant]
     Indication: ANTITUSSIVE THERAPY
     Route: 048
     Dates: start: 20120809, end: 20130802
  9. MAGMITT [Concomitant]
     Indication: PROPHYLAXIS
     Route: 048
     Dates: start: 20120809, end: 20130802
  10. WARFARIN [Concomitant]
     Indication: ATRIAL FIBRILLATION
     Route: 048
     Dates: start: 200802, end: 20130802
  11. EPADEL-S [Concomitant]
     Indication: DYSLIPIDAEMIA
     Route: 048
     Dates: start: 200802, end: 20130802
  12. HALFDIGOXIN KY [Concomitant]
     Indication: ATRIAL FIBRILLATION
     Route: 048
     Dates: start: 200802, end: 20130802
  13. LUPRAC [Concomitant]
     Indication: ATRIAL FIBRILLATION
     Route: 048
     Dates: start: 200802, end: 20130802
  14. OLMETEC [Concomitant]
     Indication: HYPERTENSION
     Route: 048
     Dates: start: 200802, end: 20130802

REACTIONS (6)
  - Haemoptysis [Fatal]
  - Respiratory tract haemorrhage [Fatal]
  - Loss of consciousness [Unknown]
  - Respiratory arrest [Unknown]
  - Neoplasm [Unknown]
  - Epistaxis [Unknown]
